FAERS Safety Report 12055755 (Version 1)
Quarter: 2016Q1

REPORT INFORMATION
  Report Type: Report from Study
  Country: NL (occurrence: NL)
  Receive Date: 20160209
  Receipt Date: 20160209
  Transmission Date: 20160526
  Serious: Yes (Death)
  Sender: FDA-Public Use
  Company Number: NL-WATSON-2016-01553

PATIENT
  Age: 67 Year
  Sex: Male

DRUGS (1)
  1. TRELSTAR [Suspect]
     Active Substance: TRIPTORELIN PAMOATE
     Indication: PROSTATE CANCER
     Dosage: 11.25 MG, ONCE EVERY 12 WEEKS CYCLICAL
     Route: 065
     Dates: start: 20121122

REACTIONS (1)
  - Death [Fatal]

NARRATIVE: CASE EVENT DATE: 20150914
